FAERS Safety Report 8666099 (Version 2)
Quarter: 2013Q1

REPORT INFORMATION
  Report Type: Spontaneous
  Country: US (occurrence: US)
  Receive Date: 20120716
  Receipt Date: 20130312
  Transmission Date: 20140127
  Serious: No
  Sender: FDA-Public Use
  Company Number: US-PFIZER INC-2012168854

PATIENT
  Age: 64 Year
  Sex: Male
  Weight: 77.1 kg

DRUGS (3)
  1. LYRICA [Suspect]
     Indication: PAIN IN EXTREMITY
     Dosage: 100 MG
     Route: 048
     Dates: end: 201207
  2. LYRICA [Suspect]
     Indication: PAIN
     Dosage: 100 MG, 4X/DAY
     Route: 048
     Dates: start: 2012, end: 20121231
  3. KLONOPIN [Concomitant]
     Dosage: UNK

REACTIONS (3)
  - Sleep disorder [Unknown]
  - Pain [Unknown]
  - Movement disorder [Unknown]
